FAERS Safety Report 5822268-7 (Version None)
Quarter: 2008Q3

REPORT INFORMATION
  Report Type: 
  Country: None (occurrence: None)
  Receive Date: 20080723
  Receipt Date: 20080723
  Transmission Date: 20090109
  Serious: Yes (Life-Threatening)
  Sender: FDA-Public Use
  Company Number: None

PATIENT
  Age: 61 Year
  Sex: Male
  Weight: 122.4712 kg

DRUGS (2)
  1. EFFEXOR XR [Suspect]
     Indication: DEPRESSION
     Dosage: ONE PILL ONCE A DAY
     Dates: start: 20050722, end: 20080722
  2. EFFEXOR XR [Suspect]
     Indication: FATIGUE
     Dosage: ONE PILL ONCE A DAY
     Dates: start: 20050722, end: 20080722

REACTIONS (6)
  - DRUG DEPENDENCE [None]
  - DYSPNOEA [None]
  - FEAR [None]
  - MIDDLE INSOMNIA [None]
  - NIGHTMARE [None]
  - PALPITATIONS [None]
